FAERS Safety Report 18650959 (Version 2)
Quarter: 2020Q4

REPORT INFORMATION
  Report Type: Report from Study
  Country: US (occurrence: US)
  Receive Date: 20201222
  Receipt Date: 20201230
  Transmission Date: 20210114
  Serious: Yes (Hospitalization)
  Sender: FDA-Public Use
  Company Number: US-JNJFOC-20201223894

PATIENT
  Age: 48 Year
  Sex: Female
  Weight: 86.26 kg

DRUGS (2)
  1. VELETRI [Suspect]
     Active Substance: EPOPROSTENOL
     Indication: PULMONARY HYPERTENSION
     Route: 042
  2. MACITENTAN [Suspect]
     Active Substance: MACITENTAN
     Indication: PULMONARY ARTERIAL HYPERTENSION
     Route: 048
     Dates: start: 20200910

REACTIONS (7)
  - Dizziness [Unknown]
  - Headache [Unknown]
  - Pain in jaw [Unknown]
  - Cardiomegaly [Unknown]
  - Pulmonary hypertension [Unknown]
  - Sensory disturbance [Unknown]
  - Adverse drug reaction [Unknown]

NARRATIVE: CASE EVENT DATE: 20201126
